FAERS Safety Report 7294378-1 (Version None)
Quarter: 2011Q1

REPORT INFORMATION
  Report Type: 
  Country: None (occurrence: None)
  Receive Date: 20110215
  Receipt Date: 20110202
  Transmission Date: 20110831
  Serious: Yes (Hospitalization)
  Sender: FDA-Public Use
  Company Number: JP-AMGEN-JPNCT2011001527

PATIENT
  Age: 69 Year
  Sex: Male
  Weight: 59 kg

DRUGS (22)
  1. PANITUMUMAB [Suspect]
     Indication: COLORECTAL CANCER
     Dosage: 6 MG/KG, Q2WK
     Route: 041
     Dates: start: 20100824, end: 20101207
  2. CETUXIMAB [Concomitant]
     Indication: COLORECTAL CANCER
     Dosage: UNK
     Route: 041
     Dates: start: 20091201, end: 20100801
  3. VOWLO [Concomitant]
     Indication: PROPHYLAXIS
     Dosage: UNK
     Route: 049
  4. GASCON [Concomitant]
     Indication: CONSTIPATION PROPHYLAXIS
     Dosage: UNK
     Route: 048
  5. PANITUMUMAB [Suspect]
     Dosage: 6 MG/KG, Q2WK
     Route: 041
     Dates: start: 20101102, end: 20101207
  6. ANTIHISTAMINES [Concomitant]
     Indication: PROPHYLAXIS
     Dosage: UNK
     Route: 065
  7. METHYCOBAL [Concomitant]
     Indication: NEUROPATHY PERIPHERAL
     Dosage: UNK
     Route: 048
  8. AMLODIPINE [Concomitant]
     Indication: HYPERTENSION
     Dosage: UNK
     Route: 048
  9. LOBU [Concomitant]
     Indication: CANCER PAIN
     Dosage: UNK
     Route: 048
  10. LOBU [Concomitant]
     Route: 048
     Dates: start: 20101019
  11. PURSENNID [Concomitant]
     Route: 048
     Dates: start: 20040922
  12. METHYCOBAL [Concomitant]
     Route: 048
     Dates: start: 20070425, end: 20101005
  13. LANSOPRAZOLE [Concomitant]
     Dosage: UNK
     Route: 048
  14. LANSOPRAZOLE [Concomitant]
     Route: 048
     Dates: start: 20101019, end: 20101207
  15. PURSENNID [Concomitant]
     Indication: CONSTIPATION
     Dosage: UNK
     Route: 048
  16. AMLODIPINE [Concomitant]
     Route: 048
     Dates: start: 20060328
  17. CORTICOSTEROIDS [Concomitant]
     Indication: PROPHYLAXIS
     Dosage: UNK
     Route: 065
  18. KOBALNON [Concomitant]
     Route: 048
     Dates: start: 20081015
  19. LAC B N [Concomitant]
     Dosage: UNK
     Route: 048
  20. VOWLO [Concomitant]
     Route: 049
     Dates: start: 20091229, end: 20110118
  21. KOBALNON [Concomitant]
     Indication: GASTRITIS
     Dosage: UNK
     Route: 048
  22. GASCON [Concomitant]
     Route: 048
     Dates: start: 20040818

REACTIONS (7)
  - DERMATITIS ACNEIFORM [None]
  - MYOCARDIAL INFARCTION [None]
  - PRURITUS [None]
  - BLOOD MAGNESIUM DECREASED [None]
  - BLOOD CALCIUM DECREASED [None]
  - PARONYCHIA [None]
  - LOWER GASTROINTESTINAL HAEMORRHAGE [None]
